FAERS Safety Report 9790571 (Version 3)
Quarter: 2014Q1

REPORT INFORMATION
  Report Type: Spontaneous
  Country: US (occurrence: US)
  Receive Date: 20131231
  Receipt Date: 20140228
  Transmission Date: 20141002
  Serious: No
  Sender: FDA-Public Use
  Company Number: US-009507513-1312USA008936

PATIENT
  Age: 81 Year
  Sex: Female
  Weight: 87.75 kg

DRUGS (3)
  1. OXYTROL FOR WOMEN [Suspect]
     Indication: HYPERTONIC BLADDER
     Dosage: 1 DF, ONCE
     Route: 062
     Dates: start: 20131130, end: 20131130
  2. EQUATE ALLERGY AND SINUS (NEW FORMULA) [Concomitant]
     Indication: SINUS DISORDER
     Dosage: UNK, UNKNOWN
  3. ONE-A-DAY 50 PLUS [Concomitant]
     Indication: ROUTINE HEALTH MAINTENANCE
     Dosage: UNK, UNKNOWN

REACTIONS (3)
  - Micturition disorder [Recovered/Resolved]
  - Chapped lips [Recovered/Resolved]
  - Dry throat [Recovered/Resolved]
